FAERS Safety Report 24315141 (Version 8)
Quarter: 2025Q1

REPORT INFORMATION
  Report Type: Spontaneous
  Country: US (occurrence: US)
  Receive Date: 20240913
  Receipt Date: 20250206
  Transmission Date: 20250409
  Serious: No
  Sender: UNITED THERAPEUTICS
  Company Number: US-UNITED THERAPEUTICS-UNT-2024-026599

PATIENT
  Sex: Female
  Weight: 50.34 kg

DRUGS (9)
  1. TYVASO [Suspect]
     Active Substance: TREPROSTINIL
     Indication: Pulmonary arterial hypertension
     Dosage: 18 ?G, QID
     Dates: start: 2024, end: 2024
  2. TYVASO [Suspect]
     Active Substance: TREPROSTINIL
     Dosage: 24 ?G, QID
     Dates: start: 2024, end: 2024
  3. TYVASO [Suspect]
     Active Substance: TREPROSTINIL
     Dosage: 18 ?G, QID
     Dates: start: 2024
  4. TYVASO [Suspect]
     Active Substance: TREPROSTINIL
  5. FAMOTIDINE [Concomitant]
     Active Substance: FAMOTIDINE
     Indication: Product used for unknown indication
  6. LOSARTAN POTASSIUM [Concomitant]
     Active Substance: LOSARTAN POTASSIUM
     Indication: Product used for unknown indication
  7. LEVOXYL [Concomitant]
     Active Substance: LEVOTHYROXINE SODIUM
     Indication: Product used for unknown indication
  8. ACETAMINOPHEN [Concomitant]
     Active Substance: ACETAMINOPHEN
     Indication: Product used for unknown indication
  9. CHLORASEPTIC SORE THROAT [Concomitant]
     Active Substance: PHENOL
     Indication: Product used for unknown indication

REACTIONS (18)
  - Cough [Not Recovered/Not Resolved]
  - Blood pressure systolic decreased [Unknown]
  - Dermatitis contact [Unknown]
  - Dyspnoea [Unknown]
  - Weight decreased [Unknown]
  - Headache [Unknown]
  - Feeling of body temperature change [Unknown]
  - Rash [Unknown]
  - Nausea [Unknown]
  - Decreased appetite [Recovering/Resolving]
  - Asthenia [Unknown]
  - Psychomotor hyperactivity [Unknown]
  - Thyroid hormones increased [Unknown]
  - Skin lesion [Unknown]
  - Therapy non-responder [Unknown]
  - Inappropriate schedule of product administration [Unknown]
  - Product leakage [Unknown]
  - Device operational issue [Not Recovered/Not Resolved]

NARRATIVE: CASE EVENT DATE: 20240101
